FAERS Safety Report 5213179-9 (Version None)
Quarter: 2007Q1

REPORT INFORMATION
  Report Type: 
  Country: None (occurrence: None)
  Receive Date: 20070119
  Receipt Date: 20070115
  Transmission Date: 20070707
  Serious: Yes (Hospitalization)
  Sender: FDA-Public Use
  Company Number: JP-JPN-A200604832

PATIENT
  Age: 42 Year
  Sex: Female
  Weight: 55 kg

DRUGS (8)
  1. PAXIL [Suspect]
     Indication: DEPRESSION
     Route: 048
     Dates: start: 20050516, end: 20050531
  2. CARBOCAIN [Suspect]
     Indication: PAIN IN EXTREMITY
     Route: 008
     Dates: start: 20050513, end: 20050601
  3. ROPIVACAINE HYDROCHLORIDE [Suspect]
     Indication: PAIN IN EXTREMITY
     Dosage: 4ML TWICE PER DAY
     Route: 008
     Dates: start: 20050518, end: 20050531
  4. SEDIEL [Concomitant]
     Indication: DEPRESSION
     Route: 048
     Dates: start: 20050425, end: 20050601
  5. TRYPTANOL [Concomitant]
     Indication: DEPRESSION
     Route: 048
     Dates: start: 20050422, end: 20050505
  6. LENDORMIN [Concomitant]
     Indication: INSOMNIA
     Route: 048
     Dates: start: 20050525, end: 20050531
  7. LORCAM [Concomitant]
     Indication: PAIN IN EXTREMITY
     Route: 048
     Dates: start: 20050418, end: 20050601
  8. MUCOSTA [Concomitant]
     Indication: GASTRITIS
     Route: 048
     Dates: start: 20050418, end: 20050601

REACTIONS (8)
  - CATHETER SITE RELATED REACTION [None]
  - CHOLELITHIASIS [None]
  - EOSINOPHIL COUNT INCREASED [None]
  - HEPATIC ENZYME INCREASED [None]
  - HEPATIC FUNCTION ABNORMAL [None]
  - LIVER DISORDER [None]
  - MALAISE [None]
  - PYREXIA [None]
